FAERS Safety Report 24643770 (Version 3)
Quarter: 2025Q1

REPORT INFORMATION
  Report Type: Spontaneous
  Country: US (occurrence: US)
  Receive Date: 20241120
  Receipt Date: 20250219
  Transmission Date: 20250409
  Serious: No
  Sender: PFIZER
  Company Number: US-PFIZER INC-202400302792

PATIENT
  Age: 5 Year
  Sex: Male
  Weight: 17.8 kg

DRUGS (1)
  1. GENOTROPIN [Suspect]
     Active Substance: SOMATROPIN
     Indication: Growth hormone deficiency
     Dosage: 6 TIMES A WEEK
     Route: 058
     Dates: start: 20241025

REACTIONS (1)
  - Injection site bruising [Recovered/Resolved]
